FAERS Safety Report 7230791-6 (Version None)
Quarter: 2011Q1

REPORT INFORMATION
  Report Type: 
  Country: None (occurrence: None)
  Receive Date: 20110107
  Receipt Date: 20101228
  Transmission Date: 20110831
  Serious: Yes (Hospitalization)
  Sender: FDA-Public Use
  Company Number: 1000011593

PATIENT
  Age: 59 Year
  Sex: Female

DRUGS (6)
  1. ESCITALOPRAM [Suspect]
     Dosage: 10 MG (10 MG,1 IN 1 D), ORAL
     Route: 048
     Dates: start: 20090101, end: 20090515
  2. FURADANTINE (NITROFURANTOIN) (CAPSULES) [Suspect]
     Indication: URINARY TRACT INFECTION
     Dosage: 21.4286 MG (50 MG, 3 IN 1 WK), ORAL
     Route: 048
     Dates: start: 20060101, end: 20090515
  3. CRESTOR (ROSUVASTATIN) (TABLETS) [Suspect]
     Dosage: 10 MG (10 MG,1 IN 1 D),ORAL
     Route: 048
     Dates: start: 20090101, end: 20090515
  4. PROROFAN (PROPOFAN, CAFFEINE, DEXTROPROPOXYPHENE) (PROPOFAN, CAFFEINE [Concomitant]
  5. IBUPROFEN [Suspect]
     Dosage: 0.25 DOSAGE FORM (0.5 DOSAGE FORMS, 1 IN 2 D)
     Dates: end: 20091015
  6. DOLIPRANE (PARACETAMOL) (TABLETS) [Suspect]
     Indication: ARTHRALGIA
     Dosage: 0.25 DOSAGE FORM (0.5 DOSAGE FORMS,1 IN 2 D)
     Dates: end: 20091015

REACTIONS (2)
  - HEPATIC FIBROSIS [None]
  - CYTOLYTIC HEPATITIS [None]
